FAERS Safety Report 11419811 (Version 1)
Quarter: 2015Q3

REPORT INFORMATION
  Report Type: Spontaneous
  Country: FR (occurrence: FR)
  Receive Date: 20150826
  Receipt Date: 20150826
  Transmission Date: 20151125
  Serious: Yes (Death, Hospitalization, Other)
  Sender: FDA-Public Use
  Company Number: FR-CHARTWELL LIFE SCIENCE LLC-2015CHA00008

PATIENT
  Age: 26 Year
  Sex: Male

DRUGS (1)
  1. DOXYCYCLINE. [Suspect]
     Active Substance: DOXYCYCLINE
     Indication: MALARIA PROPHYLAXIS
     Dosage: UNK
     Dates: start: 2014

REACTIONS (6)
  - Hypotension [Not Recovered/Not Resolved]
  - Treatment failure [Not Recovered/Not Resolved]
  - Altered state of consciousness [Not Recovered/Not Resolved]
  - Plasmodium malariae infection [Fatal]
  - Renal failure [Not Recovered/Not Resolved]
  - Brain oedema [Not Recovered/Not Resolved]
